FAERS Safety Report 22324108 (Version 8)
Quarter: 2023Q4

REPORT INFORMATION
  Report Type: Report from Study
  Country: US (occurrence: US)
  Receive Date: 20230516
  Receipt Date: 20231213
  Transmission Date: 20240110
  Serious: Yes (Other)
  Sender: FDA-Public Use
  Company Number: US-002147023-NVSC2023US109607

PATIENT
  Sex: Female

DRUGS (1)
  1. KISQALI [Suspect]
     Active Substance: RIBOCICLIB
     Indication: Product used for unknown indication
     Dosage: UNK
     Route: 065

REACTIONS (19)
  - Gastric ulcer [Unknown]
  - Diabetes mellitus [Unknown]
  - Abdominal discomfort [Unknown]
  - Eye disorder [Unknown]
  - Rhinorrhoea [Unknown]
  - Hiccups [Unknown]
  - Blood glucose increased [Unknown]
  - Eye allergy [Unknown]
  - Madarosis [Unknown]
  - Micturition urgency [Unknown]
  - Tremor [Unknown]
  - Rash pruritic [Unknown]
  - Alopecia [Unknown]
  - Dry skin [Unknown]
  - Hair texture abnormal [Unknown]
  - Vomiting [Unknown]
  - Nausea [Unknown]
  - Drug ineffective [Unknown]
  - Wrong technique in product usage process [Unknown]
